FAERS Safety Report 9848183 (Version 1)
Quarter: 2013Q4

REPORT INFORMATION
  Report Type: Spontaneous
  Country: US (occurrence: None)
  Receive Date: 20131223
  Receipt Date: 20131223
  Transmission Date: 20140711
  Serious: No
  Sender: FDA-Public Use
  Company Number: 1000050918

PATIENT
  Sex: Male

DRUGS (5)
  1. LINZESS (LINACLOTIDE) (290 MICROGRAM, CAPSULES) [Suspect]
     Indication: IRRITABLE BOWEL SYNDROME
     Dosage: 290 MCG (290 MCG, 1 IN 1 D),ORAL
     Route: 048
  2. FLOMAX (TAMSULOSIN) (TAMSULOSIN) [Concomitant]
  3. BUSPAR (BUSPIRONE HYDROCHLORIDE) (BUSPIRONE HYDROCHLORIDE) [Concomitant]
  4. KLONOPIN (CLONAZEPAM) (CLONAZEPAM) [Concomitant]
  5. ZOLPIDEM (ZOLPIDEM) (ZOLPIDEM) [Concomitant]

REACTIONS (1)
  - Diarrhoea [None]
